FAERS Safety Report 5389547-1 (Version None)
Quarter: 2007Q3

REPORT INFORMATION
  Report Type: 
  Country: None (occurrence: None)
  Receive Date: 20070717
  Receipt Date: 20070705
  Transmission Date: 20080115
  Serious: Yes (Other)
  Sender: FDA-Public Use
  Company Number: US-PFIZER INC-2007040903

PATIENT
  Sex: Male

DRUGS (3)
  1. LIPITOR [Suspect]
     Indication: HYPERLIPIDAEMIA
  2. ZETIA [Concomitant]
     Dosage: DAILY DOSE:10MG-FREQ:DAILY
  3. NEXIUM [Concomitant]
     Dosage: DAILY DOSE:40MG-FREQ:DAILY

REACTIONS (14)
  - BENIGN PROSTATIC HYPERPLASIA [None]
  - BLADDER TRANSITIONAL CELL CARCINOMA [None]
  - BLOOD CHOLESTEROL INCREASED [None]
  - BLOOD TRIGLYCERIDES INCREASED [None]
  - COGNITIVE DISORDER [None]
  - DISORIENTATION [None]
  - DIVERTICULUM [None]
  - GASTROOESOPHAGEAL REFLUX DISEASE [None]
  - GLOBAL AMNESIA [None]
  - LOW DENSITY LIPOPROTEIN INCREASED [None]
  - MEMORY IMPAIRMENT [None]
  - OSTEOARTHRITIS [None]
  - PROSTATIC SPECIFIC ANTIGEN INCREASED [None]
  - RETROGRADE AMNESIA [None]
